FAERS Safety Report 5395526-0 (Version None)
Quarter: 2007Q3

REPORT INFORMATION
  Report Type: 
  Country: None (occurrence: None)
  Receive Date: 20070718
  Receipt Date: 20070213
  Transmission Date: 20080115
  Serious: Yes (Death, Hospitalization, Other)
  Sender: FDA-Public Use
  Company Number: 2006129809

PATIENT
  Age: 39 Year
  Sex: Female

DRUGS (1)
  1. CELEBREX [Suspect]
     Indication: THROMBOSIS
     Dates: start: 20031101, end: 20031113

REACTIONS (4)
  - CEREBROVASCULAR DISORDER [None]
  - DEPRESSION [None]
  - MYOCARDIAL INFARCTION [None]
  - PULMONARY THROMBOSIS [None]
